FAERS Safety Report 10720490 (Version 40)
Quarter: 2021Q3

REPORT INFORMATION
  Report Type: Report from Study
  Country: CA (occurrence: CA)
  Receive Date: 20150119
  Receipt Date: 20210917
  Transmission Date: 20211014
  Serious: Yes (Hospitalization, Other)
  Sender: FDA-Public Use
  Company Number: PHHY2010CA13505

PATIENT
  Age: 64 Year
  Sex: Female

DRUGS (15)
  1. SANDOSTATIN LAR DEPOT [Suspect]
     Active Substance: OCTREOTIDE ACETATE
     Indication: CARCINOID TUMOUR
     Dosage: 30 MG, QMO
     Route: 030
     Dates: start: 20100225
  2. SANDOSTATIN [Suspect]
     Active Substance: OCTREOTIDE ACETATE
     Indication: CARCINOID TUMOUR
     Dosage: UNK UNK, BID
     Route: 058
     Dates: start: 20100218, end: 20100308
  3. MORPHINE [Concomitant]
     Active Substance: MORPHINE
     Indication: PRODUCT USED FOR UNKNOWN INDICATION
     Dosage: UNK
     Route: 065
  4. SANDOSTATIN [Suspect]
     Active Substance: OCTREOTIDE ACETATE
  5. HYDROCHLOROTHIAZIDE. [Concomitant]
     Active Substance: HYDROCHLOROTHIAZIDE
     Indication: PRODUCT USED FOR UNKNOWN INDICATION
     Dosage: UNK
     Route: 065
  6. SANDOSTATIN LAR DEPOT [Suspect]
     Active Substance: OCTREOTIDE ACETATE
  7. APO ALENDRONAT [Concomitant]
     Indication: PRODUCT USED FOR UNKNOWN INDICATION
     Dosage: 70 MG, QW
     Route: 065
  8. METOPROLOL. [Suspect]
     Active Substance: METOPROLOL
     Indication: PRODUCT USED FOR UNKNOWN INDICATION
     Dosage: UNK
     Route: 065
  9. CLONIDINE. [Concomitant]
     Active Substance: CLONIDINE
     Indication: PRODUCT USED FOR UNKNOWN INDICATION
     Dosage: UNK
     Route: 065
  10. SYNTHROID [Concomitant]
     Active Substance: LEVOTHYROXINE SODIUM
     Indication: PRODUCT USED FOR UNKNOWN INDICATION
     Dosage: 1 DF, QD
     Route: 048
     Dates: start: 202002
  11. SANDOSTATIN LAR DEPOT [Suspect]
     Active Substance: OCTREOTIDE ACETATE
     Dosage: 30 MG, QMO
     Route: 030
     Dates: start: 20190208
  12. CRESTOR [Concomitant]
     Active Substance: ROSUVASTATIN CALCIUM
     Indication: PRODUCT USED FOR UNKNOWN INDICATION
     Dosage: UNK
     Route: 065
  13. SANDOSTATIN [Suspect]
     Active Substance: OCTREOTIDE ACETATE
  14. AVAPRO [Concomitant]
     Active Substance: IRBESARTAN
     Indication: PRODUCT USED FOR UNKNOWN INDICATION
     Dosage: UNK
     Route: 065
  15. CALCIUM [Concomitant]
     Active Substance: CALCIUM
     Indication: PRODUCT USED FOR UNKNOWN INDICATION
     Dosage: 4 DF, TID (THREE TIMES A DAY)
     Route: 048
     Dates: start: 202002

REACTIONS (41)
  - Cystitis [Unknown]
  - Myocardial infarction [Unknown]
  - Intestinal obstruction [Unknown]
  - Hepatic neoplasm [Unknown]
  - Malaise [Unknown]
  - Peripheral swelling [Unknown]
  - Pneumonia [Unknown]
  - Uterine cancer [Unknown]
  - Nausea [Unknown]
  - Muscle spasms [Unknown]
  - Ligament sprain [Unknown]
  - Haematoma [Unknown]
  - Injection site swelling [Not Recovered/Not Resolved]
  - Endometrial thickening [Unknown]
  - Electrolyte depletion [Unknown]
  - Asthenia [Not Recovered/Not Resolved]
  - Injection site mass [Unknown]
  - Visual impairment [Unknown]
  - Eye haematoma [Unknown]
  - Fall [Unknown]
  - Abdominal pain upper [Unknown]
  - Oedema peripheral [Unknown]
  - Oedema [Unknown]
  - Hip fracture [Unknown]
  - Vomiting [Unknown]
  - Dizziness [Unknown]
  - Second primary malignancy [Unknown]
  - Haemoglobin decreased [Unknown]
  - Injection site erythema [Not Recovered/Not Resolved]
  - Fluid retention [Unknown]
  - Diarrhoea [Not Recovered/Not Resolved]
  - Decreased appetite [Not Recovered/Not Resolved]
  - Spinal fracture [Unknown]
  - Back pain [Not Recovered/Not Resolved]
  - Osteoporosis [Unknown]
  - Injection site warmth [Not Recovered/Not Resolved]
  - Weight decreased [Unknown]
  - Abdominal pain [Unknown]
  - Gait disturbance [Unknown]
  - Thyroid disorder [Unknown]
  - Urinary tract infection [Not Recovered/Not Resolved]

NARRATIVE: CASE EVENT DATE: 20100227
